FAERS Safety Report 21216328 (Version 2)
Quarter: 2022Q3

REPORT INFORMATION
  Report Type: Report from Study
  Country: DE (occurrence: None)
  Receive Date: 20220816
  Receipt Date: 20220823
  Transmission Date: 20221026
  Serious: Yes (Hospitalization)
  Sender: FDA-Public Use
  Company Number: DE-ROCHE-3159711

PATIENT
  Age: 79 Year
  Sex: Female
  Weight: 66.8 kg

DRUGS (13)
  1. PERTUZUMAB [Suspect]
     Active Substance: PERTUZUMAB
     Indication: Breast cancer metastatic
     Dosage: 22/JUL/2022 MOST RECENT DOSE OF DRUG PRIOR TO SAE/AESI
     Route: 042
     Dates: start: 20200306
  2. TRASTUZUMAB [Suspect]
     Active Substance: TRASTUZUMAB
     Indication: Breast cancer metastatic
     Dosage: ON 22/JUL/2022 MOST RECENT DOSE OF TRASTUZUMAB PRIOR TO SAE/AESI WAS ADMINISTERED
     Route: 042
     Dates: start: 20200306
  3. RIBOCICLIB [Suspect]
     Active Substance: RIBOCICLIB
     Indication: Breast cancer metastatic
     Dosage: LAST DOSE PRIOR TO SAE IS 24-AUG-2022
     Route: 048
     Dates: start: 20220306
  4. CEFAZOLIN [Concomitant]
     Active Substance: CEFAZOLIN
     Route: 065
     Dates: start: 20220131, end: 20220205
  5. FOSTER [Concomitant]
     Active Substance: BECLOMETHASONE\FORMOTEROL
     Dosage: DOSE AS REQUIRED
  6. IBUPROFEN [Concomitant]
     Active Substance: IBUPROFEN
     Dosage: DOSE AS REQUIRED
     Route: 065
     Dates: start: 20201009
  7. KALINOR [Concomitant]
     Dates: start: 20200324
  8. LAVASEPT SOLUTION [Concomitant]
     Dosage: DOSE AS REQUIRED
     Route: 065
     Dates: start: 20220131, end: 20220205
  9. PROLIA [Concomitant]
     Active Substance: DENOSUMAB
     Dates: end: 20200301
  10. LETROZOLE [Concomitant]
     Active Substance: LETROZOLE
     Route: 065
  11. ASPIRIN [Concomitant]
     Active Substance: ASPIRIN
  12. IBANDRONATE SODIUM [Concomitant]
     Active Substance: IBANDRONATE SODIUM
     Dates: start: 20200306
  13. CANDESARTAN [Concomitant]
     Active Substance: CANDESARTAN

REACTIONS (1)
  - Thrombosis [Recovered/Resolved]

NARRATIVE: CASE EVENT DATE: 20220804
